FAERS Safety Report 7759147 (Version 3)
Quarter: 2013Q4

REPORT INFORMATION
  Report Type: Spontaneous
  Country: US (occurrence: US)
  Receive Date: 20110113
  Receipt Date: 20131226
  Transmission Date: 20140711
  Serious: Yes (Hospitalization)
  Sender: FDA-Public Use
  Company Number: US-BAYER-2011-003052

PATIENT
  Age: 19 Year
  Sex: Female
  Weight: 108.84 kg

DRUGS (4)
  1. YAZ [Suspect]
     Indication: ORAL CONTRACEPTION
     Dosage: UNK
     Route: 048
     Dates: start: 200711, end: 201001
  2. YAZ [Suspect]
     Indication: PREMENSTRUAL SYNDROME
  3. VIGAMOX [Concomitant]
     Dosage: 0.5 UNK, UNK
     Dates: start: 20080910
  4. AZITHROMYCIN [Concomitant]
     Dosage: 250 MG, UNK
     Dates: start: 20081027

REACTIONS (6)
  - Cholecystitis acute [None]
  - Pain [None]
  - Diarrhoea [None]
  - Diarrhoea [None]
  - Abdominal pain [None]
  - Constipation [None]
